FAERS Safety Report 24064329 (Version 1)
Quarter: 2024Q3

REPORT INFORMATION
  Report Type: Other
  Country: DE (occurrence: DE)
  Receive Date: 20240709
  Receipt Date: 20240709
  Transmission Date: 20241016
  Serious: Yes (Other)
  Sender: MACLEODS
  Company Number: DE-EMBRYOTOX-202301664

PATIENT

DRUGS (3)
  1. ARIPIPRAZOLE [Suspect]
     Active Substance: ARIPIPRAZOLE
     Indication: Schizophrenia
     Dosage: GESTATION PERIOD AT TIME OF EXPOSURE AT 1 {TRIMESTER}0.-39.1. GESTATIONAL WK
     Route: 048
     Dates: start: 20221214, end: 20231002
  2. CLOZAPINE [Suspect]
     Active Substance: CLOZAPINE
     Indication: Schizophrenia
     Dosage: 500[MG/D ]/75-100-75-250,GESTATION PERIOD AT TIME OF EXPOSURE 1 {TRIMESTER}, 0-39.1 GESTATIONAL WK
     Route: 048
     Dates: start: 20221214, end: 20231002
  3. LEVOTHYROXINE SODIUM [Concomitant]
     Active Substance: LEVOTHYROXINE SODIUM
     Indication: Hypothyroidism
     Dosage: GESTATION PERIOD AT TIME OF EXPOSURE 1 {TRIMESTER}, 0. - 39.1. GESTATIONAL WEEK
     Route: 048
     Dates: start: 20221214, end: 20231002

REACTIONS (2)
  - Gestational diabetes [Recovered/Resolved]
  - Exposure during pregnancy [Unknown]
